FAERS Safety Report 17027366 (Version 1)
Quarter: 2019Q4

REPORT INFORMATION
  Report Type: Spontaneous
  Country: US (occurrence: US)
  Receive Date: 20191113
  Receipt Date: 20191113
  Transmission Date: 20200122
  Serious: Yes (Hospitalization, Other)
  Sender: FDA-Public Use
  Company Number: US-TEVA-2019-US-1135149

PATIENT
  Age: 38 Year
  Sex: Female

DRUGS (6)
  1. ETANERCEPT [Suspect]
     Active Substance: ETANERCEPT
     Indication: PSORIATIC ARTHROPATHY
  2. GOLIMUMAB [Concomitant]
     Active Substance: GOLIMUMAB
     Indication: PSORIASIS
     Route: 065
  3. CICLOSPORIN [Suspect]
     Active Substance: CYCLOSPORINE
     Indication: PSORIASIS
     Route: 065
  4. METHOTREXATE. [Suspect]
     Active Substance: METHOTREXATE
     Indication: PSORIASIS
     Route: 065
  5. USTEKINUMAB [Suspect]
     Active Substance: USTEKINUMAB
     Indication: PSORIASIS
     Dosage: EVERY 3 MONTHS
     Route: 065
  6. ETANERCEPT [Suspect]
     Active Substance: ETANERCEPT
     Indication: PSORIASIS
     Dosage: WEEKLY
     Route: 065

REACTIONS (7)
  - Influenza [Unknown]
  - Hypertension [Unknown]
  - Upper respiratory tract infection [Unknown]
  - Blood creatinine increased [Unknown]
  - Urinary tract infection [Unknown]
  - Drug ineffective [Unknown]
  - Gastrointestinal disorder [Unknown]
